FAERS Safety Report 4733074-9 (Version None)
Quarter: 2005Q3

REPORT INFORMATION
  Report Type: 
  Country: None (occurrence: None)
  Receive Date: 20050728
  Receipt Date: 20050721
  Transmission Date: 20060218
  Serious: Yes (Other)
  Sender: FDA-Public Use
  Company Number: HQWYE359521JUL05

PATIENT
  Age: 70 Year
  Sex: Female

DRUGS (6)
  1. PANTOZOL (PANTOPRAZOLE, TABLET, DELAYED RELEASE) [Suspect]
     Indication: DUODENITIS
     Dosage: 40 MG 1X PER 1 DAY
     Route: 048
     Dates: start: 20050317, end: 20050331
  2. PANTOZOL (PANTOPRAZOLE, TABLET, DELAYED RELEASE) [Suspect]
     Indication: GASTRITIS
     Dosage: 40 MG 1X PER 1 DAY
     Route: 048
     Dates: start: 20050317, end: 20050331
  3. ATORVASTATIN CALCIUM [Concomitant]
  4. MARCUMAR [Concomitant]
  5. BISOPROLOL FUMARATE [Concomitant]
  6. DIGOXIN [Concomitant]

REACTIONS (4)
  - GAMMA-GLUTAMYLTRANSFERASE INCREASED [None]
  - JAUNDICE [None]
  - LIVER DISORDER [None]
  - TRANSAMINASES INCREASED [None]
